FAERS Safety Report 7030896-9 (Version None)
Quarter: 2010Q4

REPORT INFORMATION
  Report Type: 
  Country: None (occurrence: None)
  Receive Date: 20101006
  Receipt Date: 20100921
  Transmission Date: 20110411
  Serious: Yes (Disabling, Other)
  Sender: FDA-Public Use
  Company Number: JP-GENENTECH-296655

PATIENT
  Sex: Male

DRUGS (8)
  1. RANIBIZUMAB [Suspect]
     Indication: MACULAR DEGENERATION
     Dosage: 0.05 ML, UNK
     Route: 031
     Dates: start: 20090331
  2. RANIBIZUMAB [Suspect]
     Dosage: 0.05 ML, UNK
     Route: 031
     Dates: start: 20090728
  3. RANIBIZUMAB [Suspect]
     Dosage: 0.05 ML, UNK
     Route: 031
     Dates: start: 20090901
  4. VISUDYNE [Concomitant]
     Indication: PRODUCT USED FOR UNKNOWN INDICATION
     Dosage: UNK
     Dates: start: 20050301
  5. VISUDYNE [Concomitant]
     Dosage: UNK
     Dates: end: 20081101
  6. BUFERIN [Concomitant]
     Indication: PRODUCT USED FOR UNKNOWN INDICATION
  7. MOXIFLOXACIN HYDROCHLORIDE [Concomitant]
     Indication: PRODUCT USED FOR UNKNOWN INDICATION
     Dosage: UNK
     Dates: start: 20090331, end: 20090901
  8. BROMFENAC SODIUM [Concomitant]
     Indication: PRODUCT USED FOR UNKNOWN INDICATION

REACTIONS (4)
  - DETACHMENT OF RETINAL PIGMENT EPITHELIUM [None]
  - DISEASE PROGRESSION [None]
  - RETINAL HAEMORRHAGE [None]
  - VISUAL ACUITY REDUCED [None]
